FAERS Safety Report 10521130 (Version 1)
Quarter: 2014Q4

REPORT INFORMATION
  Report Type: Spontaneous
  Country: US (occurrence: US)
  Receive Date: 20141016
  Receipt Date: 20141016
  Transmission Date: 20150528
  Serious: No
  Sender: FDA-Public Use
  Company Number: US-ASTRAZENECA-2014SE70917

PATIENT
  Age: 59 Year
  Sex: Male
  Weight: 82.6 kg

DRUGS (3)
  1. CRESTOR [Suspect]
     Active Substance: ROSUVASTATIN CALCIUM
     Route: 048
  2. LIPITOR [Suspect]
     Active Substance: ATORVASTATIN CALCIUM
  3. LOVENOX [Concomitant]
     Active Substance: ENOXAPARIN SODIUM

REACTIONS (1)
  - Hypotension [Unknown]

NARRATIVE: CASE EVENT DATE: 1994
